FAERS Safety Report 8915628 (Version 1)
Quarter: 2012Q4

REPORT INFORMATION
  Report Type: 
  Country: CH (occurrence: CH)
  Receive Date: 20121119
  Receipt Date: 20121119
  Transmission Date: 20130627
  Serious: Yes (Hospitalization)
  Sender: FDA-Public Use
  Company Number: CH-MERCK-1211CHE006840

PATIENT
  Age: 86 Year
  Sex: Female

DRUGS (9)
  1. JANUVIA [Suspect]
     Indication: TYPE 2 DIABETES MELLITUS
     Dosage: 100 mg, qd
     Route: 048
     Dates: end: 20121009
  2. GLIMEPIRIDE [Suspect]
     Indication: TYPE 2 DIABETES MELLITUS
     Dosage: 1 mg, qd
     Route: 048
     Dates: end: 20121009
  3. BENAZEPRIL HYDROCHLORIDE [Suspect]
     Indication: HYPERTENSION
     Dosage: 40 mg, qd
     Route: 048
  4. TRICOR [Suspect]
     Indication: DYSLIPIDAEMIA
     Dosage: 145 mg, qd
     Route: 048
  5. BAYER ASPIRIN CARDIO [Concomitant]
     Dosage: 81 mg, qd
     Route: 048
  6. AMIODARONE [Concomitant]
     Dosage: 200 mg, qd
     Route: 048
  7. AMLODIPINE [Concomitant]
     Dosage: 5 mg, qd
     Route: 048
  8. DOXAZOSIN MESYLATE [Concomitant]
     Dosage: 2 mg, qd
     Route: 048
  9. LEVOTHYROXINE SODIUM [Concomitant]
     Dosage: 25 Microgram, qd
     Route: 048

REACTIONS (5)
  - Hypoglycaemia [Recovered/Resolved]
  - Mucosal dryness [None]
  - Renal failure [None]
  - Drug effect increased [None]
  - Drug interaction [None]
